FAERS Safety Report 15090213 (Version 4)
Quarter: 2025Q1

REPORT INFORMATION
  Report Type: Spontaneous
  Country: FR (occurrence: FR)
  Receive Date: 20180629
  Receipt Date: 20250206
  Transmission Date: 20250409
  Serious: Yes (Death, Hospitalization, Other)
  Sender: MERCK
  Company Number: None

PATIENT
  Age: 63 Year
  Sex: Male
  Weight: 84 kg

DRUGS (9)
  1. EMEND [Suspect]
     Active Substance: APREPITANT
     Indication: Prophylaxis of nausea and vomiting
     Dosage: 125 MG, 1X/DAY
     Route: 048
     Dates: start: 20180511, end: 20180513
  2. FOLIC ACID [Suspect]
     Active Substance: FOLIC ACID
     Indication: Prophylaxis
     Dosage: 0.4 MG, 1X/DAY
     Route: 048
     Dates: start: 20180511, end: 20180604
  3. ALIMTA [Suspect]
     Active Substance: PEMETREXED DISODIUM
     Indication: Bronchial carcinoma
     Route: 041
     Dates: start: 20180511, end: 20180511
  4. ALIMTA [Suspect]
     Active Substance: PEMETREXED DISODIUM
     Indication: Bronchial carcinoma
     Route: 042
     Dates: start: 20180511, end: 20180511
  5. ALIMTA [Suspect]
     Active Substance: PEMETREXED DISODIUM
     Indication: Bronchial carcinoma
  6. CARBOPLATIN [Suspect]
     Active Substance: CARBOPLATIN
     Indication: Bronchial carcinoma
     Route: 042
     Dates: start: 20180511, end: 20180511
  7. PREDNISONE [Suspect]
     Active Substance: PREDNISONE
     Indication: Prophylaxis
     Dosage: 60 MG, 1X/DAY
     Route: 048
     Dates: start: 20180510, end: 20180512
  8. METHYLPREDNISOLONE [Suspect]
     Active Substance: METHYLPREDNISOLONE
     Indication: Prophylaxis
     Route: 042
     Dates: start: 20180511, end: 20180511
  9. ONDANSETRON [Suspect]
     Active Substance: ONDANSETRON
     Indication: Prophylaxis of nausea and vomiting
     Route: 042
     Dates: start: 20180511, end: 20180511

REACTIONS (8)
  - White blood cell count increased [Fatal]
  - Inflammation [Fatal]
  - Hypotension [Fatal]
  - Asthenia [Fatal]
  - Diarrhoea [Fatal]
  - Acute kidney injury [Fatal]
  - Melaena [Fatal]
  - Septic shock [Fatal]

NARRATIVE: CASE EVENT DATE: 20180101
